FAERS Safety Report 8247467-9 (Version None)
Quarter: 2012Q1

REPORT INFORMATION
  Report Type: 
  Country: None (occurrence: None)
  Receive Date: 20120327
  Receipt Date: 20120313
  Transmission Date: 20120608
  Serious: Yes (Other)
  Sender: FDA-Public Use
  Company Number: CIP09001037

PATIENT
  Age: 38 Year
  Sex: Female

DRUGS (5)
  1. CALCIUM CARBONATE [Concomitant]
  2. ERGOCALCIFEROL [Concomitant]
  3. ALFAROL (ALFACALCIDOL) [Concomitant]
  4. ACTONEL [Suspect]
     Indication: OSTEITIS DEFORMANS
     Dosage: 17.5 MG ONCE DAILY, ORAL, 2-3 DAYS PER WEEK, ORAL
     Route: 048
     Dates: end: 20090403
  5. ACTONEL [Suspect]
     Indication: OSTEITIS DEFORMANS
     Dosage: 17.5 MG ONCE DAILY, ORAL, 2-3 DAYS PER WEEK, ORAL
     Route: 048
     Dates: start: 20090406, end: 20090408

REACTIONS (3)
  - HYPOAESTHESIA [None]
  - TETANY [None]
  - HYPOCALCAEMIA [None]
